FAERS Safety Report 6228860-2 (Version None)
Quarter: 2009Q2

REPORT INFORMATION
  Report Type: 
  Country: None (occurrence: None)
  Receive Date: 20090611
  Receipt Date: 20090611
  Transmission Date: 20091009
  Serious: Yes (Other)
  Sender: FDA-Public Use
  Company Number: None

PATIENT
  Sex: Female
  Weight: 61.2356 kg

DRUGS (1)
  1. AMPHETAMINE MIX ER CAP (BARR) [Suspect]
     Dosage: 20 MG 2 X DAILY PO
     Route: 048
     Dates: start: 20090423, end: 20090601

REACTIONS (1)
  - MUSCLE SPASMS [None]
